FAERS Safety Report 24274991 (Version 1)
Quarter: 2024Q3

REPORT INFORMATION
  Report Type: Other
  Country: FR (occurrence: FR)
  Receive Date: 20240902
  Receipt Date: 20240902
  Transmission Date: 20241016
  Serious: Yes (Hospitalization)
  Sender: MARKSANS
  Company Number: FR-Marksans Pharma Limited-2161089

PATIENT
  Age: 67 Year
  Sex: Male

DRUGS (11)
  1. ACETAMINOPHEN [Suspect]
     Active Substance: ACETAMINOPHEN
     Indication: Analgesic therapy
     Route: 065
  2. IMIPENEM [Concomitant]
     Active Substance: IMIPENEM
     Route: 065
  3. NEFOPAM [Concomitant]
     Active Substance: NEFOPAM
     Route: 065
  4. MORPHINE SULFATE [Concomitant]
     Active Substance: MORPHINE SULFATE
     Route: 065
  5. ASPIRIN [Concomitant]
     Active Substance: ASPIRIN
     Route: 065
  6. TIVICAY [Concomitant]
     Active Substance: DOLUTEGRAVIR SODIUM
     Route: 065
  7. RITONAVIR [Concomitant]
     Active Substance: RITONAVIR
     Route: 065
  8. ARUNAVIR [Concomitant]
     Route: 065
  9. ODEFSEY [Concomitant]
     Active Substance: EMTRICITABINE\RILPIVIRINE HYDROCHLORIDE\TENOFOVIR ALAFENAMIDE FUMARATE
     Route: 065
  10. INSULIN NOS [Concomitant]
     Active Substance: INSULIN NOS
     Route: 065
  11. FLUCONAZOLE [Concomitant]
     Active Substance: FLUCONAZOLE
     Route: 065

REACTIONS (1)
  - Pyroglutamic acidosis [Unknown]
